FAERS Safety Report 4784719-9 (Version None)
Quarter: 2005Q3

REPORT INFORMATION
  Report Type: 
  Country: None (occurrence: None)
  Receive Date: 20050929
  Receipt Date: 20050929
  Transmission Date: 20060218
  Serious: Yes (Hospitalization)
  Sender: FDA-Public Use
  Company Number: None

PATIENT
  Age: 66 Year
  Sex: Male
  Weight: 89.5 kg

DRUGS (16)
  1. DIGOXIN [Suspect]
     Indication: CARDIAC FAILURE CONGESTIVE
     Dosage: 0.125MG,0.125MG, ORAL
     Route: 048
  2. ASPIRIN [Concomitant]
  3. FUROSEMIDE [Concomitant]
  4. MULTIVITAMIN/MINERALS THERAPEUT [Concomitant]
  5. INSULIN NPH HUMAN 100 U/ML INJ NOVOLIN N [Concomitant]
  6. ERGOCALCIFEROL (VITAMIN D) [Concomitant]
  7. COLCHICINE [Concomitant]
  8. AMIODARONE HCL [Concomitant]
  9. LANOXIN [Concomitant]
  10. GLIPIZIDE [Concomitant]
  11. GATIFLOXACIN [Concomitant]
  12. LORATADINE [Concomitant]
  13. METHOCARBAMOL [Concomitant]
  14. SODIUM CHLORIDE [Concomitant]
  15. ALBUTEROL [Concomitant]
  16. LISINOPRIL [Concomitant]

REACTIONS (3)
  - NAUSEA [None]
  - SYNCOPE [None]
  - VOMITING [None]
